FAERS Safety Report 9668026 (Version 1)
Quarter: 2013Q4

REPORT INFORMATION
  Report Type: Spontaneous
  Country: VN (occurrence: VN)
  Receive Date: 20131104
  Receipt Date: 20131104
  Transmission Date: 20140711
  Serious: Yes (Other)
  Sender: FDA-Public Use
  Company Number: VN-GLAXOSMITHKLINE-B0938939A

PATIENT
  Age: 2 Year
  Sex: Female

DRUGS (1)
  1. ZINACEF [Suspect]
     Indication: ANTIBIOTIC THERAPY
     Route: 065

REACTIONS (3)
  - Meningitis [Unknown]
  - Convulsion [Not Recovered/Not Resolved]
  - Cyanosis [Unknown]
